FAERS Safety Report 19952968 (Version 1)
Quarter: 2021Q4

REPORT INFORMATION
  Report Type: Spontaneous
  Country: KR (occurrence: KR)
  Receive Date: 20211014
  Receipt Date: 20211014
  Transmission Date: 20220303
  Serious: Yes (Other)
  Sender: FDA-Public Use
  Company Number: KR-UCBSA-2021047718

PATIENT
  Age: 69 Year
  Sex: Female

DRUGS (9)
  1. LEVETIRACETAM [Suspect]
     Active Substance: LEVETIRACETAM
     Indication: Status epilepticus
     Dosage: 1000 MILLIGRAMS PER DAY
     Route: 048
  2. LEVETIRACETAM [Suspect]
     Active Substance: LEVETIRACETAM
     Indication: Off label use
  3. PHENYTOIN [Concomitant]
     Active Substance: PHENYTOIN
     Indication: Status epilepticus
     Dosage: 900 MILLIGRAMS PER DAY
     Route: 042
  4. PHENYTOIN [Concomitant]
     Active Substance: PHENYTOIN
     Dosage: 300 MILLIGRAMS PER DAY
     Route: 042
  5. PHENYTOIN [Concomitant]
     Active Substance: PHENYTOIN
     Dosage: 200 MILLIGRAMS PER DAY
     Route: 042
  6. VALPROATE [Concomitant]
     Active Substance: VALPROIC ACID
     Indication: Status epilepticus
     Dosage: 800 MILLIGRAMS PER DAY
  7. DONEPEZIL [Concomitant]
     Active Substance: DONEPEZIL
     Indication: Dementia Alzheimer^s type
     Dosage: UNK
  8. MEMANTINE [Concomitant]
     Active Substance: MEMANTINE
     Indication: Dementia Alzheimer^s type
     Dosage: UNK
  9. CIPROFLOXACIN [Concomitant]
     Active Substance: CIPROFLOXACIN
     Indication: Urinary tract infection
     Dosage: 400 MILLIGRAMS PER DAY

REACTIONS (2)
  - Tremor [Recovered/Resolved]
  - Off label use [Unknown]
